FAERS Safety Report 12866803 (Version 3)
Quarter: 2016Q4

REPORT INFORMATION
  Report Type: Report from Study
  Country: UY (occurrence: UY)
  Receive Date: 20161020
  Receipt Date: 20161118
  Transmission Date: 20170207
  Serious: Yes (Hospitalization, Other)
  Sender: FDA-Public Use
  Company Number: UY-ACTELION-A-US2016-142163

PATIENT
  Age: 51 Year
  Sex: Female

DRUGS (14)
  1. VENTAVIS [Suspect]
     Active Substance: ILOPROST
     Indication: PULMONARY HYPERTENSION
     Dosage: 6 DF, QID
     Route: 055
     Dates: start: 20110819
  2. SILDENAFIL. [Concomitant]
     Active Substance: SILDENAFIL
  3. OMEPRAZOL [Concomitant]
     Active Substance: OMEPRAZOLE
  4. SERTRALINE [Concomitant]
     Active Substance: SERTRALINE HYDROCHLORIDE
  5. GEMFIBROZIL. [Concomitant]
     Active Substance: GEMFIBROZIL
  6. ALDACTONE [Concomitant]
     Active Substance: SPIRONOLACTONE
  7. WARFARIN [Interacting]
     Active Substance: WARFARIN
     Indication: PRODUCT USED FOR UNKNOWN INDICATION
     Dosage: UNK
     Route: 065
     Dates: start: 20160819
  8. DIAFORMIN [Concomitant]
     Active Substance: METFORMIN HYDROCHLORIDE
  9. QUETIAPINE. [Concomitant]
     Active Substance: QUETIAPINE
  10. DIGOXINE [Concomitant]
     Active Substance: DIGOXIN
  11. VENTAVIS [Interacting]
     Active Substance: ILOPROST
     Dosage: 1 DF, 6ID
     Route: 055
  12. FUROSEMIDE. [Concomitant]
     Active Substance: FUROSEMIDE
  13. ATORVASTATIN [Concomitant]
     Active Substance: ATORVASTATIN
  14. CLONAZEPAM. [Concomitant]
     Active Substance: CLONAZEPAM

REACTIONS (7)
  - Haemoptysis [Recovered/Resolved]
  - Drug interaction [Unknown]
  - Cerebrovascular accident [Recovered/Resolved]
  - Syncope [Recovered/Resolved]
  - Drug dose omission [Unknown]
  - Hemiplegia [Recovered/Resolved]
  - Bronchospasm [Recovered/Resolved]

NARRATIVE: CASE EVENT DATE: 20160801
